FAERS Safety Report 6479952-4 (Version None)
Quarter: 2009Q4

REPORT INFORMATION
  Report Type: 
  Country: None (occurrence: None)
  Receive Date: 20091208
  Receipt Date: 20091117
  Transmission Date: 20100525
  Serious: Yes (Death)
  Sender: FDA-Public Use
  Company Number: US-SANOFI-AVENTIS-2009SA003184

PATIENT
  Sex: Female

DRUGS (2)
  1. PLAVIX [Suspect]
     Route: 048
     Dates: start: 20091001
  2. ASPIRIN [Suspect]
     Route: 048

REACTIONS (3)
  - HYPOTENSION [None]
  - INTERNATIONAL NORMALISED RATIO INCREASED [None]
  - OFF LABEL USE [None]
